FAERS Safety Report 17004264 (Version 6)
Quarter: 2020Q1

REPORT INFORMATION
  Report Type: Spontaneous
  Country: US (occurrence: US)
  Receive Date: 20191107
  Receipt Date: 20200219
  Transmission Date: 20200409
  Serious: Yes (Hospitalization, Other)
  Sender: FDA-Public Use
  Company Number: US-PFIZER INC-2019480616

PATIENT
  Age: 84 Year
  Sex: Female
  Weight: 50 kg

DRUGS (1)
  1. XELJANZ [Suspect]
     Active Substance: TOFACITINIB CITRATE
     Indication: RHEUMATOID ARTHRITIS
     Dosage: 5 MG, 2X/DAY
     Route: 048
     Dates: start: 201910

REACTIONS (7)
  - Back injury [Recovered/Resolved]
  - Limb injury [Unknown]
  - Pneumonia [Unknown]
  - Muscle disorder [Unknown]
  - Sepsis [Unknown]
  - Oxygen saturation decreased [Unknown]
  - Arthropathy [Unknown]

NARRATIVE: CASE EVENT DATE: 20200101
